FAERS Safety Report 7553344-9 (Version None)
Quarter: 2011Q2

REPORT INFORMATION
  Report Type: 
  Country: None (occurrence: None)
  Receive Date: 20110617
  Receipt Date: 20110608
  Transmission Date: 20111010
  Serious: Yes (Other)
  Sender: FDA-Public Use
  Company Number: JP-BRISTOL-MYERS SQUIBB COMPANY-15825714

PATIENT
  Age: 71 Year
  Sex: Female

DRUGS (4)
  1. FLUOROURACIL [Suspect]
     Route: 042
  2. TAXOL [Suspect]
     Route: 042
  3. CYCLOPHOSPHAMIDE [Suspect]
     Route: 042
  4. EPIRUBICIN [Suspect]
     Route: 042

REACTIONS (1)
  - PHLEBITIS SUPERFICIAL [None]
